FAERS Safety Report 12668638 (Version 3)
Quarter: 2016Q4

REPORT INFORMATION
  Report Type: Spontaneous
  Country: US (occurrence: US)
  Receive Date: 20160819
  Receipt Date: 20161114
  Transmission Date: 20170207
  Serious: No
  Sender: FDA-Public Use
  Company Number: US-ASTRAZENECA-2016SE86590

PATIENT
  Sex: Female

DRUGS (1)
  1. TUDORZA PRESSAIR [Suspect]
     Active Substance: ACLIDINIUM BROMIDE
     Indication: CHRONIC OBSTRUCTIVE PULMONARY DISEASE
     Dosage: 400 MCG, ONE PUFF, TWICE A DAY FOR PAST 2 YEARS
     Route: 055

REACTIONS (3)
  - Cataract [Unknown]
  - Device malfunction [Unknown]
  - Limb discomfort [Not Recovered/Not Resolved]
